FAERS Safety Report 5903583-5 (Version None)
Quarter: 2008Q3

REPORT INFORMATION
  Report Type: 
  Country: None (occurrence: None)
  Receive Date: 20080919
  Receipt Date: 20080612
  Transmission Date: 20090109
  Serious: No
  Sender: FDA-Public Use
  Company Number: US-WYE-H04527408

PATIENT
  Sex: Female

DRUGS (11)
  1. PRISTIQ [Suspect]
     Indication: DEPRESSION
     Dosage: 50 MG 1X PER 1 DAY, ORAL
     Route: 048
     Dates: start: 20080602
  2. HYDROCHLOROTHIAZIDE [Suspect]
     Indication: FLUID RETENTION
     Dosage: 12.5 MG (FREQUENCY UNKNOWN)
     Dates: start: 20080602
  3. NEXIUM [Suspect]
     Indication: GASTROOESOPHAGEAL REFLUX DISEASE
     Dosage: 40 MG (FREQUENCY UNKNOWN)
     Dates: start: 20080602
  4. XANAX [Concomitant]
  5. SUCRALFATE [Concomitant]
  6. HYDROCODONE (HYDROCODONE) [Concomitant]
  7. DIAZEPAM [Concomitant]
  8. ATARAX [Concomitant]
  9. ELAVIL [Concomitant]
  10. PHENERGAN (DIBROMPROPAMIDINE ISETIONATE/PROMETHAZINE HYDROCHLORIDE) [Concomitant]
  11. OXYCONTIN [Concomitant]

REACTIONS (2)
  - ABDOMINAL PAIN [None]
  - CONDITION AGGRAVATED [None]
